FAERS Safety Report 7790481-8 (Version None)
Quarter: 2011Q3

REPORT INFORMATION
  Report Type: 
  Country: None (occurrence: None)
  Receive Date: 20110930
  Receipt Date: 20110916
  Transmission Date: 20111222
  Serious: Yes (Hospitalization)
  Sender: FDA-Public Use
  Company Number: PHHO2011US15800

PATIENT
  Sex: Female
  Weight: 44 kg

DRUGS (3)
  1. CERTICAN [Suspect]
     Indication: RENAL TRANSPLANT
     Dosage: 0.75 MG, BID
     Dates: start: 20101121
  2. CERTICAN [Suspect]
     Dosage: 1.5 MG, BID
     Dates: start: 20101201
  3. TACROLIMUS [Suspect]
     Indication: RENAL TRANSPLANT

REACTIONS (3)
  - CONCOMITANT DISEASE PROGRESSION [None]
  - DIABETIC GASTROPARESIS [None]
  - PYREXIA [None]
